FAERS Safety Report 6380155-2 (Version None)
Quarter: 2009Q3

REPORT INFORMATION
  Report Type: 
  Country: None (occurrence: None)
  Receive Date: 20090929
  Receipt Date: 20090916
  Transmission Date: 20100115
  Serious: Yes (Death, Life-Threatening, Hospitalization, Other)
  Sender: FDA-Public Use
  Company Number: JP-PFIZER INC-2009265543

PATIENT
  Age: 59 Year

DRUGS (16)
  1. SILDENAFIL CITRATE [Suspect]
     Indication: PULMONARY ARTERIAL HYPERTENSION
     Dosage: UNK
     Route: 048
     Dates: start: 20090701
  2. DORNER [Concomitant]
     Route: 048
  3. WARFARIN POTASSIUM [Concomitant]
     Route: 048
  4. PREDNISOLONE [Concomitant]
     Route: 048
  5. GLUCONSAN K [Concomitant]
     Dosage: UNK
     Route: 048
     Dates: end: 20090825
  6. PROCYLIN [Concomitant]
     Dosage: UNK
     Route: 048
     Dates: end: 20090825
  7. GASMOTIN [Concomitant]
     Dosage: UNK
     Route: 048
     Dates: end: 20090825
  8. PROMAC /JPN/ [Concomitant]
     Dosage: UNK
     Route: 048
     Dates: end: 20090825
  9. LANSOPRAZOLE [Concomitant]
     Dosage: UNK
     Route: 048
     Dates: end: 20090825
  10. PAXIL [Concomitant]
     Dosage: UNK
     Route: 048
     Dates: end: 20090825
  11. THEO-DUR [Concomitant]
     Dosage: UNK
     Route: 048
     Dates: end: 20090825
  12. MYSLEE [Concomitant]
     Dosage: UNK
     Dates: start: 20090718, end: 20090825
  13. SILECE [Concomitant]
     Dosage: UNK
     Dates: start: 20090718, end: 20090825
  14. RENIVACE [Concomitant]
     Dosage: UNK
     Dates: start: 20090813, end: 20090820
  15. LASIX [Concomitant]
     Dosage: UNK
     Dates: start: 20090813, end: 20090820
  16. DIAMOX [Concomitant]
     Dosage: UNK
     Dates: start: 20090818

REACTIONS (4)
  - ANGINA PECTORIS [None]
  - BLOOD PRESSURE DECREASED [None]
  - HYPERCAPNIA [None]
  - PNEUMOTHORAX [None]
